FAERS Safety Report 13372902 (Version 1)
Quarter: 2017Q1

REPORT INFORMATION
  Report Type: Spontaneous
  Country: US (occurrence: US)
  Receive Date: 20170326
  Receipt Date: 20170326
  Transmission Date: 20170429
  Serious: Yes (Disabling)
  Sender: FDA-Public Use
  Company Number: None

PATIENT
  Age: 39 Year
  Sex: Female
  Weight: 56.25 kg

DRUGS (9)
  1. GLUCOASMINE SULFATE [Concomitant]
  2. METHYLFOLATE [Concomitant]
     Active Substance: LEVOMEFOLATE CALCIUM
  3. DOXYCYCLINE HYCLATE. [Suspect]
     Active Substance: DOXYCYCLINE HYCLATE
     Indication: CHILLS
     Route: 048
     Dates: start: 20161028, end: 20161031
  4. MAGNESIUM MALATE [Concomitant]
  5. TURMERIC WITH BLACK PEPPER [Concomitant]
  6. FISH OIL [Concomitant]
     Active Substance: FISH OIL
  7. DOXYCYCLINE HYCLATE. [Suspect]
     Active Substance: DOXYCYCLINE HYCLATE
     Indication: PARAESTHESIA
     Route: 048
     Dates: start: 20161028, end: 20161031
  8. BROMELAIN [Concomitant]
     Active Substance: BROMELAINS
  9. HYDROXY B-12 [Concomitant]

REACTIONS (8)
  - Skin disorder [None]
  - Feeling hot [None]
  - Ear disorder [None]
  - Pain of skin [None]
  - Quality of life decreased [None]
  - Ear pain [None]
  - Erythema [None]
  - Feeling abnormal [None]

NARRATIVE: CASE EVENT DATE: 20161030
